FAERS Safety Report 21228834 (Version 1)
Quarter: 2022Q3

REPORT INFORMATION
  Report Type: Spontaneous
  Country: US (occurrence: None)
  Receive Date: 20220818
  Receipt Date: 20220818
  Transmission Date: 20221027
  Serious: No
  Sender: FDA-Public Use
  Company Number: None

PATIENT
  Age: 71 Year
  Sex: Female

DRUGS (2)
  1. CLOBETASOL PROPIONATE OINT 0.05% [Suspect]
     Active Substance: CLOBETASOL PROPIONATE
     Indication: Psoriasis
     Dosage: FREQUENCY : DAILY;?IAPPLY TO AFFECTED AREA(S) ONCE DAILY AS DIRECTED.?
     Route: 061
     Dates: start: 202207
  2. FLUOCINOLONE ACETONIDE [Suspect]
     Active Substance: FLUOCINOLONE ACETONIDE
     Indication: Psoriasis
     Dosage: FREQUENCY : DAILY;?APPLY TO AFFECTED AREA(S) ONCE DAILY AS DIRECTED.?
     Route: 061
     Dates: start: 202207

REACTIONS (1)
  - Hospitalisation [None]
